FAERS Safety Report 5545409-8 (Version None)
Quarter: 2007Q4

REPORT INFORMATION
  Report Type: 
  Country: None (occurrence: None)
  Receive Date: 20071211
  Receipt Date: 20071205
  Transmission Date: 20080405
  Serious: Yes (Death)
  Sender: FDA-Public Use
  Company Number: AU-ELI_LILLY_AND_COMPANY-AU200705004976

PATIENT
  Age: 47 Year
  Sex: Male

DRUGS (1)
  1. ZYPREXA [Suspect]
     Indication: SCHIZOPHRENIA
     Dosage: 30 MG, DAILY (1/D)
     Dates: start: 19980101

REACTIONS (2)
  - CARDIOMYOPATHY [None]
  - OVERDOSE [None]
